FAERS Safety Report 9523443 (Version 1)
Quarter: 2013Q1

REPORT INFORMATION
  Report Type: Spontaneous
  Country: US (occurrence: None)
  Receive Date: 20130305
  Receipt Date: 20130305
  Transmission Date: 20140127
  Serious: Yes (Other)
  Sender: FDA-Public Use
  Company Number: 163-21880-12012698

PATIENT
  Age: 76 Year
  Sex: Female

DRUGS (6)
  1. REVLIMID [Suspect]
     Indication: 5Q MINUS SYNDROME
     Dosage: 10 MG, DAILY, PO
     Route: 048
     Dates: start: 20120104, end: 201201
  2. PROCARDIA (NIFEDIPINE) (UNKNOWN) (NIFEDIPINE) [Concomitant]
  3. ATENOLOL (ATENOLOL) (UNKNOWN)? [Concomitant]
  4. LASIX (FUROSEMIDE) (UNKNOWN) [Concomitant]
  5. ASA (ACETYLSALICYLIC ACID) (UNKNOWN) [Concomitant]
  6. BACLOFEN (BACLOFEN) (UNKNOWN) [Concomitant]

REACTIONS (2)
  - Neutrophil count decreased [None]
  - Haemoglobin decreased [None]
